FAERS Safety Report 4638767-X (Version None)
Quarter: 2005Q2

REPORT INFORMATION
  Report Type: 
  Country: None (occurrence: None)
  Receive Date: 20050328
  Receipt Date: 20041117
  Transmission Date: 20051028
  Serious: No
  Sender: FDA-Public Use
  Company Number: US_0411108647

PATIENT
  Age: 34 Year
  Sex: Female

DRUGS (2)
  1. STRATTERA [Suspect]
     Indication: ATTENTION DEFICIT/HYPERACTIVITY DISORDER
     Dosage: 40 MG DAY
     Dates: start: 20041001
  2. CELEXA [Concomitant]

REACTIONS (3)
  - FEELING ABNORMAL [None]
  - HYPOKINESIA [None]
  - SOMNOLENCE [None]
